FAERS Safety Report 4414600-6 (Version None)
Quarter: 2004Q3

REPORT INFORMATION
  Report Type: 
  Country: None (occurrence: None)
  Receive Date: 20040729
  Receipt Date: 20040716
  Transmission Date: 20050211
  Serious: Yes (Other)
  Sender: FDA-Public Use
  Company Number: NO-JNJFOC-20040101995

PATIENT
  Age: 69 Year
  Sex: Female

DRUGS (9)
  1. REMICADE [Suspect]
     Indication: RHEUMATOID ARTHRITIS
     Dosage: 240 MG, 1 IN 6 WEEK, INTRAVENOUS
     Route: 042
     Dates: start: 20020903, end: 20031001
  2. PREDNISOLONE [Concomitant]
  3. ORUDIS [Concomitant]
  4. ZANTAC (RANITIDINE HYDREOCHLORIDE) [Concomitant]
  5. NORVASC [Concomitant]
  6. SELO-ZOK (METOPROLOL SUCCINATE) [Concomitant]
  7. THYROXIN SODIUM (LEVOTHYROXINE SODIUM) [Concomitant]
  8. OVESTERIN (ESTRIOL) [Concomitant]
  9. DIDRONATE CALCIUM (DIDRONEL) [Concomitant]

REACTIONS (1)
  - MALIGNANT MELANOMA [None]
